FAERS Safety Report 4786062-0 (Version None)
Quarter: 2005Q3

REPORT INFORMATION
  Report Type: 
  Country: None (occurrence: None)
  Receive Date: 20050930
  Receipt Date: 20050930
  Transmission Date: 20060218
  Serious: Yes (Hospitalization)
  Sender: FDA-Public Use
  Company Number: None

PATIENT
  Age: 66 Year
  Sex: Male
  Weight: 80.2867 kg

DRUGS (1)
  1. ULTRAVIST -IOPROMIDE- [Suspect]
     Indication: CATHETERISATION CARDIAC
     Dosage: X1 IV
     Route: 042
     Dates: start: 20050922, end: 20050922

REACTIONS (2)
  - CONTRAST MEDIA REACTION [None]
  - RENAL DISORDER [None]
